FAERS Safety Report 24282420 (Version 1)
Quarter: 2024Q3

REPORT INFORMATION
  Report Type: Spontaneous
  Country: US (occurrence: None)
  Receive Date: 20240904
  Receipt Date: 20240904
  Transmission Date: 20241017
  Serious: Yes (Life-Threatening, Hospitalization, Disabling)
  Sender: Public
  Company Number: None

PATIENT
  Age: 67 Year
  Sex: Female
  Weight: 103 kg

DRUGS (7)
  1. RINVOQ [Suspect]
     Active Substance: UPADACITINIB
     Indication: Rheumatoid arthritis
     Dosage: FREQUENCY : DAILY;?
     Route: 048
     Dates: start: 20230728, end: 20240813
  2. METHOTREXATE [Suspect]
     Active Substance: METHOTREXATE
  3. ENBREL [Suspect]
     Active Substance: ETANERCEPT
  4. ORENCIA [Suspect]
     Active Substance: ABATACEPT
  5. XELJANZ [Suspect]
     Active Substance: TOFACITINIB CITRATE
  6. HUMIRA [Suspect]
     Active Substance: ADALIMUMAB
  7. ACTEMRA [Suspect]
     Active Substance: TOCILIZUMAB

REACTIONS (3)
  - Chest pain [None]
  - Chest X-ray abnormal [None]
  - Acute myocardial infarction [None]

NARRATIVE: CASE EVENT DATE: 20240813
